FAERS Safety Report 16890919 (Version 2)
Quarter: 2019Q4

REPORT INFORMATION
  Report Type: Spontaneous
  Country: JP (occurrence: JP)
  Receive Date: 20191007
  Receipt Date: 20191106
  Transmission Date: 20200122
  Serious: Yes (Hospitalization)
  Sender: FDA-Public Use
  Company Number: JP-009507513-1910JPN000551J

PATIENT
  Age: 16 Year

DRUGS (1)
  1. BELSOMRA [Suspect]
     Active Substance: SUVOREXANT
     Indication: INSOMNIA
     Dosage: 10 MILLIGRAM
     Route: 048

REACTIONS (4)
  - Therapeutic response increased [Unknown]
  - Adverse event [Unknown]
  - Wrong technique in product usage process [Unknown]
  - Prescribed underdose [Unknown]
